FAERS Safety Report 7651581-6 (Version None)
Quarter: 2011Q3

REPORT INFORMATION
  Report Type: 
  Country: None (occurrence: None)
  Receive Date: 20110802
  Receipt Date: 20110720
  Transmission Date: 20111222
  Serious: Yes (Life-Threatening, Hospitalization, Other)
  Sender: FDA-Public Use
  Company Number: DE-MYLANLABS-2011S1015051

PATIENT
  Age: 43 Year
  Sex: Female
  Weight: 68 kg

DRUGS (10)
  1. VOLTAREN [Suspect]
     Indication: PRODUCT USED FOR UNKNOWN INDICATION
     Dosage: 1X1 COATED TABLET AT 50 MG 2-3X WEEKLY PER OS
     Route: 048
     Dates: start: 19800101
  2. HYDROCHLOROTHIAZIDE [Concomitant]
     Indication: PRODUCT USED FOR UNKNOWN INDICATION
     Dosage: 1X1 TABLET AT 25 MG DAILY PER OS
     Route: 048
     Dates: start: 20100101
  3. AARANE N [Concomitant]
     Indication: PRODUCT USED FOR UNKNOWN INDICATION
     Dosage: 2X2 PUFFS DAILY RESPIRATORY
     Route: 055
     Dates: start: 20000101
  4. FERROSANOL [Concomitant]
     Indication: PRODUCT USED FOR UNKNOWN INDICATION
     Dosage: NEARLY 1X1 GASTRO-RESISTANT CAPSULE AT 100 MG DAILY PER OS
     Route: 048
     Dates: start: 19800101
  5. METFORMIN HCL [Suspect]
     Indication: DIABETES MELLITUS
     Dosage: 3X1 TABLET AT 1000 MG DAILY PER OS
     Route: 048
     Dates: start: 20040101, end: 20110221
  6. ZYPREXA [Concomitant]
     Indication: PRODUCT USED FOR UNKNOWN INDICATION
     Dosage: 50 MG DAILY PER OS
     Route: 048
     Dates: start: 20100201
  7. METOPROLOL SUCCINATE [Concomitant]
     Indication: PRODUCT USED FOR UNKNOWN INDICATION
     Dosage: 1X1 PROLONGED-RELEASE TABLET AT 47.5 MG DAILY PER OS
     Route: 048
     Dates: start: 20050101
  8. OMEPRAZOLE [Concomitant]
     Indication: PRODUCT USED FOR UNKNOWN INDICATION
     Dosage: 1X 40 MG DAILY PER OS
     Route: 048
     Dates: start: 19900101
  9. LEVOTHYROXINE SODIUM [Concomitant]
     Indication: PRODUCT USED FOR UNKNOWN INDICATION
     Dosage: 1X1 TABLET AT 125 ?G DAILY PER OS
     Route: 048
     Dates: start: 20040101
  10. SERTRALINE HYDROCHLORIDE [Concomitant]
     Indication: PRODUCT USED FOR UNKNOWN INDICATION
     Dosage: 1X 100 MG DAILY PER OS
     Route: 048
     Dates: start: 20101001

REACTIONS (2)
  - LACTIC ACIDOSIS [None]
  - RENAL FAILURE ACUTE [None]
